FAERS Safety Report 9054741 (Version 1)
Quarter: 2013Q1

REPORT INFORMATION
  Report Type: Report from Study
  Country: US (occurrence: US)
  Receive Date: 20130208
  Receipt Date: 20130208
  Transmission Date: 20140127
  Serious: Yes (Other)
  Sender: FDA-Public Use
  Company Number: US-AMGEN-US379723

PATIENT
  Age: 78 Year
  Sex: Female

DRUGS (17)
  1. DARBEPOETIN ALFA [Suspect]
     Indication: CARDIAC FAILURE
     Dosage: UNK BLINDED, UNK
     Route: 058
     Dates: start: 20071002, end: 20091118
  2. LORATADINE [Concomitant]
     Dosage: 10 MG, QD
     Dates: start: 20071214
  3. SERTRALINE [Concomitant]
     Dosage: 100 MG, QD
     Dates: start: 20090417
  4. HYDROCORTISONE [Concomitant]
     Dosage: UNK UNK, BID
     Route: 061
  5. METFORMIN HYDROCHLORIDE [Concomitant]
     Dosage: 500 MG, TID
     Dates: start: 20090513
  6. IRON [Concomitant]
     Dosage: UNK UNK, BID
     Dates: start: 20090417
  7. GEMFIBROZIL [Concomitant]
     Dosage: 300 MG, QD
     Dates: start: 20090417
  8. ROSUVASTATIN CALCIUM [Concomitant]
     Dosage: 10 MG, QD
     Dates: start: 20080611
  9. ISOSORBIDE MONONITRADE [Concomitant]
     Dosage: 90 MG, QD
     Dates: start: 20090417
  10. ESOMEPRAZOLE MAGNESIUM [Concomitant]
     Dosage: 40 MG, QD
     Dates: start: 20090417
  11. GABAPENTIN [Concomitant]
     Dosage: 300 MG, BID
     Dates: start: 20090417
  12. FUROSEMIDE [Concomitant]
     Dosage: 40 MG, QD
     Dates: start: 20090417
  13. CALCIUM CARBONATE [Concomitant]
     Dosage: 600 MG, BID
     Dates: start: 20070612
  14. CARVEDILOL [Concomitant]
     Dosage: 25 MG, BID
     Dates: start: 20070417
  15. GLIMEPIRIDE [Concomitant]
     Dosage: 4 G, BID
     Dates: start: 20081229
  16. WARFARIN SODIUM [Concomitant]
     Dosage: 4 MG, UNK
     Dates: start: 20090417
  17. LEVOTHYROXINE SODIUM [Concomitant]
     Dosage: 75 MUG, QD
     Dates: start: 20040827

REACTIONS (1)
  - Lymphoma [Not Recovered/Not Resolved]
